FAERS Safety Report 10385491 (Version 2)
Quarter: 2014Q3

REPORT INFORMATION
  Report Type: Spontaneous
  Country: US (occurrence: None)
  Receive Date: 20140811
  Receipt Date: 20140818
  Transmission Date: 20150326
  Serious: Yes (Hospitalization)
  Sender: FDA-Public Use
  Company Number: UNT-2014-002267

PATIENT
  Age: 57 Year
  Sex: Female
  Weight: 44.4 kg

DRUGS (3)
  1. REMODULIN [Suspect]
     Active Substance: TREPROSTINIL
     Indication: COR PULMONALE CHRONIC
     Route: 041
     Dates: start: 20140507
  2. REVATIO (SILDENAFIL CITRATE) [Concomitant]
  3. TRACLEER [Concomitant]
     Active Substance: BOSENTAN\BOSENTAN MONOHYDRATE

REACTIONS (5)
  - Cardiac disorder [None]
  - Bronchitis [None]
  - Nasal congestion [None]
  - Nasopharyngitis [None]
  - Sinus disorder [None]

NARRATIVE: CASE EVENT DATE: 20140531
